FAERS Safety Report 21239224 (Version 1)
Quarter: 2022Q3

REPORT INFORMATION
  Report Type: Spontaneous
  Country: US (occurrence: None)
  Receive Date: 20220819
  Receipt Date: 20220819
  Transmission Date: 20221027
  Serious: Yes (Hospitalization)
  Sender: FDA-Public Use
  Company Number: None

PATIENT
  Age: 72 Year
  Sex: Male
  Weight: 130 kg

DRUGS (1)
  1. LINEZOLID [Suspect]
     Active Substance: LINEZOLID
     Indication: Pneumonia staphylococcal
     Dosage: FREQUENCY : TWICE A DAY;?
     Route: 042
     Dates: start: 20220803, end: 20220807

REACTIONS (12)
  - Metabolic encephalopathy [None]
  - Cerebrovascular accident [None]
  - Dysphagia [None]
  - Diabetic ketoacidosis [None]
  - Urinary tract infection [None]
  - Troponin increased [None]
  - Wound [None]
  - Pneumonia aspiration [None]
  - Pneumonia [None]
  - Septic shock [None]
  - Acute respiratory failure [None]
  - Drug reaction with eosinophilia and systemic symptoms [None]

NARRATIVE: CASE EVENT DATE: 20220807
